FAERS Safety Report 10452920 (Version 1)
Quarter: 2014Q3

REPORT INFORMATION
  Report Type: Spontaneous
  Country: CA (occurrence: CA)
  Receive Date: 20140915
  Receipt Date: 20140915
  Transmission Date: 20150326
  Serious: Yes (Death, Hospitalization)
  Sender: FDA-Public Use
  Company Number: CA-PFIZER INC-2014253623

PATIENT
  Age: 31 Year
  Sex: Male

DRUGS (4)
  1. COCAINE [Suspect]
     Active Substance: COCAINE
     Dosage: UNK
  2. MORPHINE SULFATE. [Suspect]
     Active Substance: MORPHINE SULFATE
     Dosage: UNK
  3. PHENYTOIN. [Suspect]
     Active Substance: PHENYTOIN
     Dosage: 150 MG, 2X/DAY
     Route: 042
  4. PROPOFOL. [Suspect]
     Active Substance: PROPOFOL
     Dosage: 150 MG, 2X/DAY
     Route: 042

REACTIONS (1)
  - Generalised tonic-clonic seizure [Fatal]
